FAERS Safety Report 9157030 (Version 1)
Quarter: 2013Q1

REPORT INFORMATION
  Report Type: Spontaneous
  Country: US (occurrence: US)
  Receive Date: 20130312
  Receipt Date: 20130312
  Transmission Date: 20140127
  Serious: Yes (Other)
  Sender: FDA-Public Use
  Company Number: US-PFIZER INC-2013060031

PATIENT
  Age: 52 Year
  Sex: Male

DRUGS (4)
  1. SUTENT [Suspect]
     Indication: METASTATIC RENAL CELL CARCINOMA
     Dosage: 50 MG, 1X/DAY (DAILY 4 WKS ON AND 2 WKS OFF)
     Route: 048
     Dates: start: 20130126, end: 20130208
  2. SUTENT [Suspect]
     Dosage: 25 MG, 1X/DAY (2 WEEKS ON AND ONE WEEK OFF)
     Route: 048
     Dates: start: 20130225
  3. NORCO [Concomitant]
     Indication: PAIN
     Dosage: 7.5-325 MG (TAKE 1 TAB EVERY 4 HOURS AS NEEDED)
     Route: 048
  4. ZYRTEC-D 12 HOUR [Concomitant]
     Dosage: 5-120 MG, 2X/DAY (TAKE 1 TAB 2 TIMES DAILY)
     Route: 048

REACTIONS (17)
  - Renal failure [Recovering/Resolving]
  - Fatigue [Recovering/Resolving]
  - Palpitations [Recovering/Resolving]
  - Dyspnoea [Recovering/Resolving]
  - Cough [Unknown]
  - Dizziness [Recovering/Resolving]
  - Back pain [Not Recovered/Not Resolved]
  - Pulmonary hilum mass [Unknown]
  - Leukopenia [Unknown]
  - Chromaturia [Unknown]
  - Blood pressure increased [Unknown]
  - Feeling abnormal [Unknown]
  - Decreased appetite [Unknown]
  - Thrombocytopenia [Unknown]
  - Constipation [Unknown]
  - Herpes virus infection [Unknown]
  - Bedridden [Unknown]
